FAERS Safety Report 9328815 (Version 1)
Quarter: 2013Q2

REPORT INFORMATION
  Report Type: Spontaneous
  Country: US (occurrence: US)
  Receive Date: 20130604
  Receipt Date: 20130604
  Transmission Date: 20140414
  Serious: Yes (Other)
  Sender: FDA-Public Use
  Company Number: US-SANOFI-AVENTIS-2013SA015880

PATIENT
  Age: 69 Year
  Sex: Female

DRUGS (16)
  1. LANTUS [Suspect]
     Indication: TYPE 2 DIABETES MELLITUS
     Route: 051
     Dates: end: 20120706
  2. LANTUS [Suspect]
     Indication: TYPE 2 DIABETES MELLITUS
     Route: 051
  3. LANTUS [Suspect]
     Indication: TYPE 2 DIABETES MELLITUS
     Route: 051
  4. LANTUS [Suspect]
     Indication: TYPE 2 DIABETES MELLITUS
     Route: 051
  5. LANTUS [Suspect]
     Indication: TYPE 2 DIABETES MELLITUS
     Route: 051
  6. LANTUS [Suspect]
     Indication: TYPE 2 DIABETES MELLITUS
     Dosage: DOSE:30 UNIT(S)
     Route: 051
     Dates: start: 20130122
  7. NOVOLOG [Suspect]
     Indication: TYPE 2 DIABETES MELLITUS
     Dates: end: 20110207
  8. NOVOLOG [Suspect]
     Indication: TYPE 2 DIABETES MELLITUS
  9. NOVOLOG [Suspect]
     Indication: TYPE 2 DIABETES MELLITUS
  10. NOVOLOG [Suspect]
     Indication: TYPE 2 DIABETES MELLITUS
  11. NOVOLOG [Suspect]
     Indication: TYPE 2 DIABETES MELLITUS
  12. NOVOLOG [Suspect]
     Indication: TYPE 2 DIABETES MELLITUS
  13. NOVOLOG [Suspect]
     Indication: TYPE 2 DIABETES MELLITUS
  14. NOVOLOG [Suspect]
     Indication: TYPE 2 DIABETES MELLITUS
     Dates: start: 20130122
  15. PIOGLITAZONE HYDROCHLORIDE [Suspect]
     Indication: TYPE 2 DIABETES MELLITUS
  16. BLINDED THERAPY [Suspect]
     Indication: TYPE 2 DIABETES MELLITUS
     Dates: start: 20100806

REACTIONS (1)
  - Hypoglycaemia [Recovered/Resolved]
